FAERS Safety Report 7287859-8 (Version None)
Quarter: 2011Q1

REPORT INFORMATION
  Report Type: 
  Country: None (occurrence: None)
  Receive Date: 20110211
  Receipt Date: 20110204
  Transmission Date: 20110831
  Serious: No
  Sender: FDA-Public Use
  Company Number: US-PFIZER INC-2011026284

PATIENT
  Sex: Female
  Weight: 90.249 kg

DRUGS (7)
  1. LIPITOR [Suspect]
     Dosage: 1/2 TABLET DOSE UNKNOWN
  2. FUROSEMIDE [Concomitant]
     Indication: DIURETIC THERAPY
     Dosage: UNK
  3. DOXAZOSIN [Concomitant]
     Indication: HYPERTENSION
     Dosage: UNK
  4. OMEPRAZOLE [Concomitant]
     Indication: NEUROPATHY PERIPHERAL
     Dosage: UNK
  5. GLYBURIDE [Concomitant]
     Indication: DIABETES MELLITUS
     Dosage: UNK
  6. METFORMIN [Concomitant]
     Indication: DIABETES MELLITUS
     Dosage: UNK
  7. LIPITOR [Suspect]
     Indication: BLOOD CHOLESTEROL INCREASED
     Dosage: UNSPECIFIED DOSE
     Route: 048

REACTIONS (3)
  - MUSCLE SPASMS [None]
  - FLATULENCE [None]
  - MUSCULAR WEAKNESS [None]
